FAERS Safety Report 25543506 (Version 2)
Quarter: 2025Q3

REPORT INFORMATION
  Report Type: Spontaneous
  Country: EU (occurrence: EU)
  Receive Date: 20250711
  Receipt Date: 20250904
  Transmission Date: 20251021
  Serious: Yes (Other)
  Sender: ALVOGEN
  Company Number: EU-THERAMEX-2025002110

PATIENT
  Age: 73 Year
  Sex: Male

DRUGS (1)
  1. TERIPARATIDE [Suspect]
     Active Substance: TERIPARATIDE
     Indication: Osteoporosis
     Dosage: INJECTED ONLY ONCE, THEN TREATMENT TERMINATED.
     Route: 058
     Dates: start: 20250612, end: 20250613

REACTIONS (2)
  - Plasma cell myeloma [Unknown]
  - Contraindicated product prescribed [Unknown]

NARRATIVE: CASE EVENT DATE: 20250612
